FAERS Safety Report 20388565 (Version 6)
Quarter: 2022Q1

REPORT INFORMATION
  Report Type: Report from Study
  Country: US (occurrence: US)
  Receive Date: 20220128
  Receipt Date: 20220329
  Transmission Date: 20220423
  Serious: Yes (Other)
  Sender: FDA-Public Use
  Company Number: US-BoehringerIngelheim-2022-BI-108945

PATIENT
  Age: 63 Year
  Sex: Female

DRUGS (2)
  1. OFEV [Suspect]
     Active Substance: NINTEDANIB
     Indication: Interstitial lung disease
     Route: 048
     Dates: start: 20220114
  2. OFEV [Suspect]
     Active Substance: NINTEDANIB
     Indication: Pulmonary fibrosis

REACTIONS (9)
  - Chest discomfort [Not Recovered/Not Resolved]
  - Weight increased [Unknown]
  - Paraesthesia [Not Recovered/Not Resolved]
  - Abdominal pain upper [Unknown]
  - Pruritus [Unknown]
  - Headache [Recovered/Resolved]
  - Headache [Unknown]
  - Hypoaesthesia [Not Recovered/Not Resolved]
  - Hepatic enzyme increased [Not Recovered/Not Resolved]

NARRATIVE: CASE EVENT DATE: 20211201
